FAERS Safety Report 7718236-0 (Version None)
Quarter: 2011Q3

REPORT INFORMATION
  Report Type: 
  Country: None (occurrence: None)
  Receive Date: 20110830
  Receipt Date: 20110822
  Transmission Date: 20111222
  Serious: Yes (Hospitalization, Other)
  Sender: FDA-Public Use
  Company Number: PHEH2011US00985

PATIENT
  Sex: Female
  Weight: 67.59 kg

DRUGS (5)
  1. HYDROXYUREA [Concomitant]
  2. DEMEROL [Concomitant]
  3. EXJADE [Suspect]
     Indication: BLOOD TEST ABNORMAL
     Dosage: 1250 MG, QD
     Route: 048
     Dates: start: 20101001
  4. FOLIC ACID [Concomitant]
  5. ASPIRIN [Concomitant]

REACTIONS (10)
  - BREATH SOUNDS ABNORMAL [None]
  - HAEMATOCRIT DECREASED [None]
  - FAECES DISCOLOURED [None]
  - CHEST PAIN [None]
  - HAEMOGLOBIN DECREASED [None]
  - GASTRITIS [None]
  - DYSPNOEA [None]
  - FATIGUE [None]
  - PLATELET COUNT DECREASED [None]
  - WHITE BLOOD CELL COUNT DECREASED [None]
